FAERS Safety Report 8267131-X (Version None)
Quarter: 2012Q2

REPORT INFORMATION
  Report Type: 
  Country: None (occurrence: None)
  Receive Date: 20120409
  Receipt Date: 20120329
  Transmission Date: 20120825
  Serious: Yes (Other)
  Sender: FDA-Public Use
  Company Number: SE-PFIZER INC-2012082738

PATIENT
  Age: 90 Year
  Sex: Male

DRUGS (4)
  1. SIMVASTATIN [Concomitant]
     Dosage: UNK
  2. CORDARONE [Suspect]
     Indication: PRODUCT USED FOR UNKNOWN INDICATION
     Dosage: 200 MG, DAILY
     Route: 048
     Dates: start: 20110101
  3. SIMVASTATIN [Concomitant]
     Dosage: 20MG
  4. MADOPARK [Concomitant]
     Dosage: UNK

REACTIONS (6)
  - VITREOUS DETACHMENT [None]
  - VISUAL IMPAIRMENT [None]
  - MUSCULOSKELETAL STIFFNESS [None]
  - CATARACT [None]
  - PARKINSON'S DISEASE [None]
  - TREMOR [None]
